FAERS Safety Report 12981335 (Version 3)
Quarter: 2017Q3

REPORT INFORMATION
  Report Type: Spontaneous
  Country: BE (occurrence: BE)
  Receive Date: 20161129
  Receipt Date: 20170811
  Transmission Date: 20171127
  Serious: Yes (Other)
  Sender: FDA-Public Use
  Company Number: BE-ASTRAZENECA-2016SF25653

PATIENT
  Sex: Male
  Weight: 160 kg

DRUGS (6)
  1. BYDUREON [Suspect]
     Active Substance: EXENATIDE
     Dosage: PEN
     Route: 065
  2. GLUOPHAGE [Concomitant]
     Dosage: BEFORE 2011, 3 X  850 MG
  3. UNIDIAMICRON [Concomitant]
     Dates: start: 2014
  4. SIMVASTATIN. [Concomitant]
     Active Substance: SIMVASTATIN
     Dates: start: 2011
  5. COVERAM [Concomitant]
     Active Substance: AMLODIPINE\PERINDOPRIL
     Dosage: 10LMG/5MG
     Dates: start: 2013
  6. BYDUREON [Suspect]
     Active Substance: EXENATIDE
     Dosage: ONCE A WEEK, KIT
     Route: 065
     Dates: start: 20140620

REACTIONS (5)
  - Lymphadenopathy mediastinal [Unknown]
  - Peripheral arterial occlusive disease [Not Recovered/Not Resolved]
  - Peripheral artery thrombosis [Unknown]
  - Peripheral embolism [Unknown]
  - Aortic thrombosis [Unknown]
